FAERS Safety Report 8311027-1 (Version None)
Quarter: 2012Q2

REPORT INFORMATION
  Report Type: 
  Country: None (occurrence: None)
  Receive Date: 20120425
  Receipt Date: 20120418
  Transmission Date: 20120825
  Serious: No
  Sender: FDA-Public Use
  Company Number: US-BIOGENIDEC-2012BI013667

PATIENT
  Sex: Female

DRUGS (2)
  1. TYSABRI [Suspect]
     Indication: MULTIPLE SCLEROSIS
     Route: 042
     Dates: start: 20090414, end: 20091103
  2. TYSABRI [Suspect]
     Route: 042
     Dates: start: 20110628

REACTIONS (3)
  - GAIT DISTURBANCE [None]
  - FATIGUE [None]
  - MULTIPLE SCLEROSIS [None]
